FAERS Safety Report 23685408 (Version 1)
Quarter: 2024Q1

REPORT INFORMATION
  Report Type: Spontaneous
  Country: IT (occurrence: IT)
  Receive Date: 20240329
  Receipt Date: 20240329
  Transmission Date: 20240410
  Serious: Yes (Death, Other)
  Sender: FDA-Public Use
  Company Number: IT-AMNEAL PHARMACEUTICALS-2024-AMRX-00972

PATIENT
  Age: 89 Year
  Sex: Male
  Weight: 53 kg

DRUGS (1)
  1. ESCITALOPRAM [Suspect]
     Active Substance: ESCITALOPRAM OXALATE
     Indication: Product used for unknown indication
     Dosage: 10 MILLIGRAM, 1 /DAY
     Route: 065

REACTIONS (4)
  - Cardiogenic shock [Fatal]
  - Respiratory failure [Fatal]
  - Aspiration [Fatal]
  - Toxicity to various agents [Fatal]
